FAERS Safety Report 18391972 (Version 1)
Quarter: 2020Q4

REPORT INFORMATION
  Report Type: Spontaneous
  Country: US (occurrence: US)
  Receive Date: 20201015
  Receipt Date: 20201015
  Transmission Date: 20210114
  Serious: Yes (Hospitalization)
  Sender: FDA-Public Use
  Company Number: None

PATIENT
  Age: 17 Year
  Sex: Male

DRUGS (2)
  1. UDENYCA [Suspect]
     Active Substance: PEGFILGRASTIM-CBQV
     Indication: BONE CANCER
     Route: 058
     Dates: start: 20200110
  2. UDENYCA [Suspect]
     Active Substance: PEGFILGRASTIM-CBQV
     Indication: CHONDROSARCOMA
     Route: 058
     Dates: start: 20200110

REACTIONS (2)
  - Ligament sprain [None]
  - Foot fracture [None]

NARRATIVE: CASE EVENT DATE: 20200916
